FAERS Safety Report 4823671-4 (Version None)
Quarter: 2005Q4

REPORT INFORMATION
  Report Type: 
  Country: None (occurrence: None)
  Receive Date: 20051109
  Receipt Date: 20051102
  Transmission Date: 20060501
  Serious: Yes (Other)
  Sender: FDA-Public Use
  Company Number: DE-GLAXOSMITHKLINE-D0047913A

PATIENT
  Sex: Male

DRUGS (1)
  1. ELMENDOS [Suspect]
     Indication: DEPRESSION
     Dosage: 100MG PER DAY
     Route: 048
     Dates: start: 20050826, end: 20050101

REACTIONS (2)
  - CONDITION AGGRAVATED [None]
  - PSORIASIS [None]
